FAERS Safety Report 10242496 (Version 2)
Quarter: 2014Q2

REPORT INFORMATION
  Report Type: Spontaneous
  Country: IT (occurrence: IT)
  Receive Date: 20140617
  Receipt Date: 20140625
  Transmission Date: 20141212
  Serious: Yes (Hospitalization)
  Sender: FDA-Public Use
  Company Number: IT-ELI_LILLY_AND_COMPANY-IT201406003046

PATIENT
  Age: 50 Year
  Sex: Male

DRUGS (11)
  1. ZYPREXA [Suspect]
     Indication: ADJUSTMENT DISORDER
     Dosage: 100 MG, PRN
     Route: 048
     Dates: start: 20140505, end: 20140505
  2. ZYPREXA [Suspect]
     Indication: DEPRESSION
     Dosage: 10 MG, PRN
     Route: 065
  3. ZYPREXA [Suspect]
     Dosage: UNK
     Route: 065
  4. UROREC [Suspect]
     Indication: BENIGN PROSTATIC HYPERPLASIA
     Dosage: 10 DF, UNKNOWN
     Route: 048
     Dates: start: 20140505, end: 20140505
  5. UROREC [Suspect]
     Dosage: 8 MG, UNKNOWN
  6. STILNOX [Suspect]
     Indication: ADJUSTMENT DISORDER
     Dosage: 280 MG, UNKNOWN
     Route: 048
     Dates: start: 20140505, end: 20140505
  7. STILNOX [Suspect]
     Indication: DEPRESSION
  8. AVODART [Suspect]
     Indication: BENIGN PROSTATIC HYPERPLASIA
     Dosage: 5 MG, UNKNOWN
     Route: 048
     Dates: start: 20140505, end: 20140505
  9. AVODART [Suspect]
     Dosage: 0.5 MG, UNKNOWN
     Route: 048
  10. RIVOTRIL [Suspect]
     Indication: ADJUSTMENT DISORDER
     Dosage: 20 ML, UNKNOWN
     Route: 048
     Dates: start: 20140505, end: 20140505
  11. RIVOTRIL [Suspect]
     Indication: DEPRESSION

REACTIONS (9)
  - Toxicity to various agents [Recovered/Resolved]
  - Suicide attempt [Recovered/Resolved]
  - Major depression [Unknown]
  - Intentional self-injury [Recovered/Resolved]
  - Anxiety [Recovered/Resolved]
  - Hypochondriasis [Recovering/Resolving]
  - Malaise [Unknown]
  - Depressed mood [Unknown]
  - Intentional overdose [Recovered/Resolved]
